FAERS Safety Report 21769562 (Version 1)
Quarter: 2022Q4

REPORT INFORMATION
  Report Type: Spontaneous
  Country: US (occurrence: US)
  Receive Date: 20221223
  Receipt Date: 20221223
  Transmission Date: 20230112
  Serious: No
  Sender: FDA-Public Use
  Company Number: US-JNJFOC-20221240324

PATIENT
  Age: 63 Year
  Sex: Male

DRUGS (2)
  1. ZYTIGA [Suspect]
     Active Substance: ABIRATERONE ACETATE
     Indication: Product used for unknown indication
     Route: 048
  2. ORGOVYX [Suspect]
     Active Substance: RELUGOLIX
     Indication: Prostate cancer
     Route: 048

REACTIONS (13)
  - Nausea [Unknown]
  - Vomiting [Unknown]
  - Blood alkaline phosphatase increased [Unknown]
  - Heart rate irregular [Unknown]
  - Blood glucose increased [Unknown]
  - Hot flush [Unknown]
  - Fatigue [Unknown]
  - Arthralgia [Unknown]
  - Myalgia [Recovered/Resolved]
  - Prostatic specific antigen increased [Not Recovered/Not Resolved]
  - Sleep disorder [Unknown]
  - Sensory disturbance [Unknown]
  - Toothache [Unknown]

NARRATIVE: CASE EVENT DATE: 20220915
